FAERS Safety Report 15689362 (Version 1)
Quarter: 2018Q4

REPORT INFORMATION
  Report Type: Spontaneous
  Country: GB (occurrence: GB)
  Receive Date: 20181205
  Receipt Date: 20181205
  Transmission Date: 20190205
  Serious: Yes (Other)
  Sender: FDA-Public Use
  Company Number: GB-TEVA-2018-GB-982366

PATIENT
  Age: 91 Year
  Sex: Female
  Weight: 69 kg

DRUGS (10)
  1. ADCAL [Concomitant]
     Active Substance: CALCIUM CARBONATE
     Dosage: 2 DOSAGE FORMS DAILY;
     Dates: start: 20171002, end: 20181031
  2. COCODAMOL [Concomitant]
     Active Substance: ACETAMINOPHEN\CODEINE PHOSPHATE
     Dosage: 6 DOSAGE FORMS DAILY;
     Dates: start: 20180712
  3. BENDROFLUMETHIAZIDE [Concomitant]
     Active Substance: BENDROFLUMETHIAZIDE
     Dosage: 1 DOSAGE FORMS DAILY; EACH MORNING
     Dates: start: 20180712, end: 20181002
  4. ACCRETE D3 [Concomitant]
     Dosage: 2 DOSAGE FORMS DAILY;
     Dates: start: 20181031
  5. COLCHICINE. [Concomitant]
     Active Substance: COLCHICINE
     Dosage: 2 DOSAGE FORMS DAILY;
     Dates: start: 20181002, end: 20181030
  6. MIRTAZAPINE. [Concomitant]
     Active Substance: MIRTAZAPINE
     Dosage: 1-2 A NIGHT
     Dates: start: 20180420
  7. IBUPROFEN. [Concomitant]
     Active Substance: IBUPROFEN
     Dosage: TAKE ONE 3 TIMES/DAY WHEN REQUIRED
     Dates: start: 20171002
  8. NAPROXEN. [Suspect]
     Active Substance: NAPROXEN
     Dates: start: 20181030
  9. FLUCLOXACILLIN [Concomitant]
     Active Substance: FLUCLOXACILLIN
     Dosage: 4 DOSAGE FORMS DAILY;
     Dates: start: 20180910, end: 20180917
  10. OMEPRAZOLE. [Concomitant]
     Active Substance: OMEPRAZOLE
     Dosage: 1 DOSAGE FORMS DAILY;
     Dates: start: 20181030

REACTIONS (1)
  - Lip swelling [Recovered/Resolved]

NARRATIVE: CASE EVENT DATE: 20181102
